FAERS Safety Report 24769878 (Version 1)
Quarter: 2024Q4

REPORT INFORMATION
  Report Type: Spontaneous
  Country: NP (occurrence: NP)
  Receive Date: 20241224
  Receipt Date: 20241224
  Transmission Date: 20250114
  Serious: Yes (Life-Threatening, Hospitalization)
  Sender: MACLEODS
  Company Number: NP-MACLEODS PHARMA-MAC2024050766

PATIENT

DRUGS (1)
  1. OLANZAPINE [Suspect]
     Active Substance: OLANZAPINE
     Indication: Accidental overdose
     Dosage: 12 TABLETS OF 15 MG EACH
     Route: 048

REACTIONS (18)
  - Aggression [Recovered/Resolved]
  - Loss of consciousness [Recovered/Resolved]
  - Hyperglycaemia [Recovered/Resolved]
  - Blood lactic acid increased [Recovered/Resolved]
  - Prothrombin time prolonged [Recovered/Resolved]
  - Blood chloride increased [Recovered/Resolved]
  - Neutrophilia [Recovered/Resolved]
  - Lymphopenia [Recovered/Resolved]
  - Anaemia [Recovered/Resolved]
  - Red blood cell count decreased [Recovered/Resolved]
  - Depressed level of consciousness [Recovered/Resolved]
  - Miosis [Recovered/Resolved]
  - Respiratory disorder [Recovered/Resolved]
  - Agitation [Recovered/Resolved]
  - Hypoxia [Recovered/Resolved]
  - Toxicity to various agents [Unknown]
  - Accidental exposure to product by child [Recovered/Resolved]
  - Accidental overdose [Recovering/Resolving]
